FAERS Safety Report 23959956 (Version 2)
Quarter: 2024Q2

REPORT INFORMATION
  Report Type: Spontaneous
  Country: US (occurrence: US)
  Receive Date: 20240611
  Receipt Date: 20240620
  Transmission Date: 20240716
  Serious: Yes (Other)
  Sender: FDA-Public Use
  Company Number: US-SERVIER-S24006691

PATIENT

DRUGS (10)
  1. ASPARLAS [Suspect]
     Active Substance: CALASPARGASE PEGOL-MKNL
     Indication: T-cell type acute leukaemia
     Dosage: 4875 U
     Route: 042
     Dates: start: 20230312, end: 20230503
  2. NELARABINE [Concomitant]
     Active Substance: NELARABINE
     Indication: T-cell type acute leukaemia
     Dosage: 1300 MG, QD
     Route: 042
     Dates: start: 20230412, end: 20230416
  3. CYCLOPHOSPHAMIDE [Concomitant]
     Active Substance: CYCLOPHOSPHAMIDE
     Indication: T-cell type acute leukaemia
     Dosage: 1940 MG, ONE DOSE
     Route: 042
     Dates: start: 20230419, end: 20230419
  4. CYTARABINE [Concomitant]
     Active Substance: CYTARABINE
     Indication: T-cell type acute leukaemia
     Dosage: 150 MG, QD
     Route: 042
     Dates: start: 20230419, end: 20230422
  5. CYTARABINE [Concomitant]
     Active Substance: CYTARABINE
     Dosage: 150 MG, QD
     Route: 042
     Dates: start: 20230426, end: 20230429
  6. MERCAPTOPURINE [Concomitant]
     Active Substance: MERCAPTOPURINE
     Indication: T-cell type acute leukaemia
     Dosage: 125 MG, QD
     Route: 048
     Dates: start: 20230419, end: 20230502
  7. VINCRISTINE [Concomitant]
     Active Substance: VINCRISTINE
     Indication: T-cell type acute leukaemia
     Dosage: 2 MG, QD
     Route: 042
     Dates: start: 20230503, end: 20230503
  8. ACETAMINOPHEN [Concomitant]
     Active Substance: ACETAMINOPHEN
     Indication: Premedication
     Dosage: 500 MG, ONE DOSE
     Route: 048
     Dates: start: 20230503, end: 20230503
  9. DIPHENHYDRAMINE [Concomitant]
     Active Substance: DIPHENHYDRAMINE
     Indication: Premedication
     Dosage: 25 MG, ONE DOSE
     Route: 048
     Dates: start: 20230503, end: 20230503
  10. HYDROCORTISONE [Concomitant]
     Active Substance: HYDROCORTISONE\HYDROCORTISONE ACETATE
     Indication: Premedication
     Dosage: 10 MG, ONE DOSE
     Route: 042
     Dates: start: 20230503, end: 20230503

REACTIONS (1)
  - Hypersensitivity [Recovered/Resolved]

NARRATIVE: CASE EVENT DATE: 20230503
